FAERS Safety Report 9771241 (Version 1)
Quarter: 2013Q4

REPORT INFORMATION
  Report Type: Spontaneous
  Country: FR (occurrence: FR)
  Receive Date: 20131218
  Receipt Date: 20131218
  Transmission Date: 20140711
  Serious: Yes (Other)
  Sender: FDA-Public Use
  Company Number: PHHY2013FR146087

PATIENT
  Age: 70 Year
  Sex: Female

DRUGS (1)
  1. TRAMADOL [Suspect]

REACTIONS (6)
  - Inappropriate antidiuretic hormone secretion [Recovering/Resolving]
  - Hyponatraemia [Recovering/Resolving]
  - Loss of consciousness [Recovering/Resolving]
  - Gastrointestinal disorder [Recovering/Resolving]
  - General physical health deterioration [Unknown]
  - Convulsion [Recovering/Resolving]
